FAERS Safety Report 5660642-2 (Version None)
Quarter: 2008Q1

REPORT INFORMATION
  Report Type: 
  Country: None (occurrence: None)
  Receive Date: 20080311
  Receipt Date: 20071120
  Transmission Date: 20080703
  Serious: No
  Sender: FDA-Public Use
  Company Number: US-BAYER-200715095NA

PATIENT
  Age: 23 Year
  Sex: Female
  Weight: 84 kg

DRUGS (1)
  1. MIRENA [Suspect]
     Indication: CONTRACEPTION
     Route: 015
     Dates: start: 20070914, end: 20071010

REACTIONS (3)
  - ABDOMINAL PAIN LOWER [None]
  - DISCOMFORT [None]
  - INTRA-UTERINE CONTRACEPTIVE DEVICE EXPELLED [None]
